FAERS Safety Report 16780387 (Version 1)
Quarter: 2019Q3

REPORT INFORMATION
  Report Type: Spontaneous
  Country: US (occurrence: US)
  Receive Date: 20190906
  Receipt Date: 20190906
  Transmission Date: 20191005
  Serious: No
  Sender: FDA-Public Use
  Company Number: US-009507513-1908USA007373

PATIENT
  Age: 38 Year
  Sex: Male

DRUGS (2)
  1. STERILE DILUENT (WATER) [Suspect]
     Active Substance: WATER
     Dosage: UNK, TWICE WEEKLY
  2. PREGNYL [Suspect]
     Active Substance: CHORIOGONADOTROPIN ALFA
     Dosage: 50 UNITS/TWICE WEEKLY
     Route: 058

REACTIONS (7)
  - Energy increased [Recovered/Resolved]
  - Product packaging quantity issue [Not Recovered/Not Resolved]
  - Testicular disorder [Recovered/Resolved]
  - Libido increased [Recovered/Resolved]
  - Product dose omission [Unknown]
  - Therapeutic product effect variable [Not Recovered/Not Resolved]
  - Wrong technique in product usage process [Unknown]

NARRATIVE: CASE EVENT DATE: 20190816
